FAERS Safety Report 18155233 (Version 1)
Quarter: 2020Q3

REPORT INFORMATION
  Report Type: Spontaneous
  Country: US (occurrence: US)
  Receive Date: 20200817
  Receipt Date: 20200817
  Transmission Date: 20201103
  Serious: No
  Sender: FDA-Public Use
  Company Number: US-ALLERGAN-2025857US

PATIENT
  Sex: Male

DRUGS (3)
  1. AQUAPHOR (XIPAMIDE) [Suspect]
     Active Substance: XIPAMIDE
     Indication: APPLICATION SITE PRURITUS
  2. AQUAPHOR (XIPAMIDE) [Suspect]
     Active Substance: XIPAMIDE
     Indication: APPLICATION SITE REACTION
  3. ANDRODERM [Suspect]
     Active Substance: TESTOSTERONE
     Indication: BLOOD TESTOSTERONE DECREASED
     Dosage: UNK UNK, QD
     Route: 061
     Dates: start: 2007

REACTIONS (4)
  - Application site pruritus [Unknown]
  - Drug ineffective [Unknown]
  - Application site irritation [Unknown]
  - Product physical issue [Unknown]
